FAERS Safety Report 5095834-7 (Version None)
Quarter: 2006Q3

REPORT INFORMATION
  Report Type: 
  Country: None (occurrence: None)
  Receive Date: 20060905
  Receipt Date: 20060824
  Transmission Date: 20061208
  Serious: Yes (Hospitalization)
  Sender: FDA-Public Use
  Company Number: BR-BRISTOL-MYERS SQUIBB COMPANY-13487996

PATIENT
  Age: 46 Year
  Sex: Male

DRUGS (2)
  1. REYATAZ [Suspect]
     Dates: start: 20060629, end: 20060727
  2. ZIDOVUDINE [Concomitant]

REACTIONS (3)
  - BILIRUBIN CONJUGATED INCREASED [None]
  - HEPATITIS [None]
  - TRANSAMINASES INCREASED [None]
